FAERS Safety Report 5478171-8 (Version None)
Quarter: 2007Q4

REPORT INFORMATION
  Report Type: 
  Country: None (occurrence: None)
  Receive Date: 20071005
  Receipt Date: 20070220
  Transmission Date: 20080405
  Serious: No
  Sender: FDA-Public Use
  Company Number: US-BRISTOL-MYERS SQUIBB COMPANY-13684691

PATIENT
  Age: 59 Year
  Sex: Female
  Weight: 63 kg

DRUGS (4)
  1. AVAPRO [Suspect]
     Indication: HYPERTENSION
     Dates: start: 20070218
  2. FOSAMAX [Concomitant]
  3. ZIAC [Concomitant]
  4. PRAVACHOL [Concomitant]

REACTIONS (1)
  - VITREOUS FLOATERS [None]
